FAERS Safety Report 20142228 (Version 1)
Quarter: 2021Q4

REPORT INFORMATION
  Report Type: Spontaneous
  Country: US (occurrence: None)
  Receive Date: 20211202
  Receipt Date: 20211202
  Transmission Date: 20220303
  Serious: Yes (Hospitalization)
  Sender: FDA-Public Use
  Company Number: None

PATIENT
  Age: 78 Year
  Sex: Female
  Weight: 68.4 kg

DRUGS (1)
  1. CASIRIVIMAB\IMDEVIMAB [Suspect]
     Active Substance: CASIRIVIMAB\IMDEVIMAB
     Indication: COVID-19
     Dosage: OTHER FREQUENCY : ONCE;?
     Route: 058
     Dates: start: 20211120, end: 20211120

REACTIONS (7)
  - Fatigue [None]
  - Dyspnoea [None]
  - Cough [None]
  - Hypophagia [None]
  - Pyrexia [None]
  - Hypernatraemia [None]
  - Dehydration [None]

NARRATIVE: CASE EVENT DATE: 20211121
